FAERS Safety Report 5976732-0 (Version None)
Quarter: 2008Q4

REPORT INFORMATION
  Report Type: 
  Country: None (occurrence: None)
  Receive Date: 20081201
  Receipt Date: 20081201
  Transmission Date: 20090506
  Serious: Yes (Other)
  Sender: FDA-Public Use
  Company Number: None

PATIENT
  Age: 69 Year
  Sex: Male
  Weight: 86.8185 kg

DRUGS (7)
  1. AMBIEN [Suspect]
     Indication: INSOMNIA
     Dosage: 10 MG NIGHTLY PO
     Route: 048
     Dates: start: 20081017
  2. FOLIC ACID [Concomitant]
  3. DIGITEK [Concomitant]
  4. WARFARIN SODIUM [Concomitant]
  5. PACERONE [Concomitant]
  6. ENALAPRIL MALEATE [Concomitant]
  7. COREG [Concomitant]

REACTIONS (1)
  - DYSPEPSIA [None]
